FAERS Safety Report 7609244-9 (Version None)
Quarter: 2011Q3

REPORT INFORMATION
  Report Type: 
  Country: None (occurrence: None)
  Receive Date: 20110713
  Receipt Date: 20110713
  Transmission Date: 20111222
  Serious: Yes (Other)
  Sender: FDA-Public Use
  Company Number: None

PATIENT
  Sex: Female
  Weight: 56 kg

DRUGS (1)
  1. PRADAXA [Suspect]
     Indication: ATRIAL FIBRILLATION
     Dosage: 150 MG 2/DAILY PO
     Route: 048
     Dates: start: 20110513, end: 20110706

REACTIONS (7)
  - DRUG HYPERSENSITIVITY [None]
  - GAIT DISTURBANCE [None]
  - ACTIVITIES OF DAILY LIVING IMPAIRED [None]
  - TEARFULNESS [None]
  - FATIGUE [None]
  - MIDDLE INSOMNIA [None]
  - MENTAL IMPAIRMENT [None]
